FAERS Safety Report 26109564 (Version 2)
Quarter: 2025Q4

REPORT INFORMATION
  Report Type: Spontaneous
  Country: GB (occurrence: GB)
  Receive Date: 20251201
  Receipt Date: 20251229
  Transmission Date: 20260117
  Serious: Yes (Hospitalization)
  Sender: MYLAN
  Company Number: GB-MYLANLABS-2025M1100535

PATIENT
  Sex: Male

DRUGS (2)
  1. CLOZARIL [Suspect]
     Active Substance: CLOZAPINE
     Indication: Schizophrenia
     Dosage: UNK
     Route: 061
     Dates: start: 20110324, end: 20251117
  2. CLOZARIL [Suspect]
     Active Substance: CLOZAPINE
     Dosage: 400 MILLIGRAM
     Route: 061

REACTIONS (5)
  - Hospitalisation [Unknown]
  - Malaise [Unknown]
  - Tachycardia [Unknown]
  - White blood cell count increased [Unknown]
  - Differential white blood cell count abnormal [Unknown]
